FAERS Safety Report 8166847-3 (Version None)
Quarter: 2012Q1

REPORT INFORMATION
  Report Type: 
  Country: None (occurrence: None)
  Receive Date: 20120227
  Receipt Date: 20120106
  Transmission Date: 20120608
  Serious: Yes (Hospitalization)
  Sender: FDA-Public Use
  Company Number: US-ROCHE-1032279

PATIENT
  Sex: Female
  Weight: 1.589 kg

DRUGS (2)
  1. OMALIZUMAB [Suspect]
     Indication: PRODUCT USED FOR UNKNOWN INDICATION
     Dosage: LAST DOSE PRIOR TO ONSET OF PNEUMONIA: 21/DEC/2010
     Route: 064
     Dates: start: 20100401
  2. TRI VI SOL [Concomitant]
     Route: 048
     Dates: start: 20110102, end: 20110128

REACTIONS (2)
  - PNEUMONIA [None]
  - MATERNAL EXPOSURE TIMING UNSPECIFIED [None]
